FAERS Safety Report 10403398 (Version 3)
Quarter: 2014Q4

REPORT INFORMATION
  Report Type: Spontaneous
  Country: US (occurrence: US)
  Receive Date: 20140822
  Receipt Date: 20141017
  Transmission Date: 20150528
  Serious: No
  Sender: FDA-Public Use
  Company Number: US-PFIZER INC-2014232027

PATIENT
  Age: 60 Year
  Sex: Female
  Weight: 59.9 kg

DRUGS (2)
  1. PREMPRO [Suspect]
     Active Substance: ESTROGENS, CONJUGATED\MEDROXYPROGESTERONE ACETATE
     Indication: HORMONE REPLACEMENT THERAPY
     Dosage: UNK
  2. PREDNISONE. [Concomitant]
     Active Substance: PREDNISONE
     Dosage: 5 MG, DAILY

REACTIONS (5)
  - Nervousness [Unknown]
  - Alopecia [Unknown]
  - Tremor [Unknown]
  - Intentional product misuse [Unknown]
  - Pruritus [Unknown]

NARRATIVE: CASE EVENT DATE: 201401
